FAERS Safety Report 14020834 (Version 2)
Quarter: 2017Q3

REPORT INFORMATION
  Report Type: Spontaneous
  Country: US (occurrence: US)
  Receive Date: 20170928
  Receipt Date: 20170928
  Transmission Date: 20171128
  Serious: No
  Sender: FDA-Public Use
  Company Number: PHHY2017US139692

PATIENT
  Sex: Male

DRUGS (2)
  1. BION TEARS [Suspect]
     Active Substance: DEXTRAN 70\HYPROMELLOSE 2910 (4000 MPA.S)
     Indication: PRODUCT USED FOR UNKNOWN INDICATION
     Route: 047
  2. TASIGNA [Suspect]
     Active Substance: NILOTINIB
     Indication: CHEMOTHERAPY
     Route: 065

REACTIONS (1)
  - Erythema [Unknown]
